FAERS Safety Report 5701630-7 (Version None)
Quarter: 2008Q2

REPORT INFORMATION
  Report Type: 
  Country: None (occurrence: None)
  Receive Date: 20080409
  Receipt Date: 20080409
  Transmission Date: 20081010
  Serious: Yes (Death, Life-Threatening, Hospitalization)
  Sender: FDA-Public Use
  Company Number: None

PATIENT
  Age: 68 Year
  Sex: Male

DRUGS (12)
  1. CLINDAMYCIN HCL [Suspect]
     Indication: LOCALISED INFECTION
     Dosage: 300MG ONCE PO
     Route: 048
     Dates: start: 20070621, end: 20070621
  2. ADACEL  0.5ML  AVENTIS [Suspect]
     Indication: LOCALISED INFECTION
     Dosage: 0.5ML ONCE IM
     Route: 030
     Dates: start: 20070621, end: 20070621
  3. SIMVASTATIN [Concomitant]
  4. WARFARIN [Concomitant]
  5. CARVEDILOL [Concomitant]
  6. METFORMIN HCL [Concomitant]
  7. RAMIPRIL [Concomitant]
  8. ALBUTEROL [Concomitant]
  9. BUPIVICAIN [Concomitant]
  10. ONDANSETROL [Concomitant]
  11. MORPHINE [Concomitant]
  12. METHYLPREDNISOLONE [Concomitant]

REACTIONS (11)
  - ACUTE MYOCARDIAL INFARCTION [None]
  - CARDIAC ARREST [None]
  - DECEREBRATION [None]
  - DYSPNOEA [None]
  - ELECTROENCEPHALOGRAM ABNORMAL [None]
  - ELECTROMECHANICAL DISSOCIATION [None]
  - EYE ROLLING [None]
  - FOAMING AT MOUTH [None]
  - MENTAL STATUS CHANGES [None]
  - PALLOR [None]
  - POSTURING [None]
